FAERS Safety Report 11294845 (Version 2)
Quarter: 2015Q3

REPORT INFORMATION
  Report Type: Report from Study
  Country: US (occurrence: None)
  Receive Date: 20150722
  Receipt Date: 20150825
  Transmission Date: 20151125
  Serious: Yes (Other)
  Sender: FDA-Public Use
  Company Number: US-2015CRT000546

PATIENT
  Age: 28 Year
  Sex: Female
  Weight: 95.7 kg

DRUGS (10)
  1. TYLENOL WITH CODEIN #3 (CAFFEINE, CODEINE PHOSPHATE, PARACETAMOL) [Concomitant]
  2. VITAMIN D2 [Concomitant]
     Active Substance: ERGOCALCIFEROL
  3. ALDACTONE [Concomitant]
     Active Substance: SPIRONOLACTONE
  4. LOVENOX [Concomitant]
     Active Substance: ENOXAPARIN SODIUM
  5. KORLYM [Suspect]
     Active Substance: MIFEPRISTONE
     Indication: PITUITARY-DEPENDENT CUSHING^S SYNDROME
     Route: 048
     Dates: start: 201506
  6. ZOLOFT [Concomitant]
     Active Substance: SERTRALINE HYDROCHLORIDE
  7. BACTRIM DS (SULFAMETHOXAZOLE, TRIMETHOPRIM) [Concomitant]
  8. SYNTHROID [Concomitant]
     Active Substance: LEVOTHYROXINE SODIUM
  9. ACETAMINOPHEN W/HYDROCODONE (HYDROCODONE, PARACETAMOL) [Concomitant]
     Active Substance: ACETAMINOPHEN\HYDROCODONE
  10. DESYREL [Concomitant]
     Active Substance: TRAZODONE HYDROCHLORIDE

REACTIONS (7)
  - Withdrawal syndrome [None]
  - Scratch [None]
  - Skin disorder [None]
  - Palpitations [None]
  - Blood pressure decreased [None]
  - Pruritus [None]
  - Formication [None]

NARRATIVE: CASE EVENT DATE: 2015
